FAERS Safety Report 10590919 (Version 1)
Quarter: 2014Q4

REPORT INFORMATION
  Report Type: Spontaneous
  Country: ES (occurrence: GB)
  Receive Date: 20141118
  Receipt Date: 20141118
  Transmission Date: 20150529
  Serious: Yes (Other)
  Sender: FDA-Public Use
  Company Number: GB-FRI-1000072428

PATIENT
  Age: 78 Year
  Sex: Female
  Weight: 59 kg

DRUGS (4)
  1. SALBUTAMOL [Concomitant]
     Active Substance: ALBUTEROL
     Route: 055
  2. BENDROFLUAZIDE [Concomitant]
     Active Substance: BENDROFLUMETHIAZIDE
     Route: 048
  3. ACLIDINIUM [Suspect]
     Active Substance: ACLIDINIUM BROMIDE
     Indication: CHRONIC OBSTRUCTIVE PULMONARY DISEASE
     Dosage: TWICE DAILY
     Route: 055
     Dates: start: 201308, end: 201410
  4. NITRAZEPAM [Concomitant]
     Active Substance: NITRAZEPAM

REACTIONS (1)
  - Tooth erosion [Unknown]
